FAERS Safety Report 8812543 (Version 2)
Quarter: 2012Q4

REPORT INFORMATION
  Report Type: 
  Country: US (occurrence: US)
  Receive Date: 20120927
  Receipt Date: 20121102
  Transmission Date: 20130627
  Serious: No
  Sender: FDA-Public Use
  Company Number: US-VERTEX PHARMACEUTICAL INC.-2012-020378

PATIENT
  Age: 55 Year
  Sex: Female
  Weight: 72 kg

DRUGS (4)
  1. INCIVEK [Suspect]
     Indication: HEPATITIS C
     Dosage: 750 mg, tid
     Route: 048
     Dates: start: 20120619, end: 20120810
  2. PEGASYS [Suspect]
     Indication: HEPATITIS C
     Dosage: UNK
     Route: 058
     Dates: start: 20120619
  3. RIBAVIRIN [Suspect]
     Indication: HEPATITIS C
     Dosage: UNK, bid
     Route: 048
     Dates: start: 20120619
  4. AMBIEN [Concomitant]
     Indication: SLEEP DISORDER
     Dosage: UNK, prn
     Route: 048

REACTIONS (5)
  - Skin ulcer [Not Recovered/Not Resolved]
  - Rash macular [Recovered/Resolved]
  - Eyelid oedema [Not Recovered/Not Resolved]
  - Nausea [Not Recovered/Not Resolved]
  - Dysgeusia [Not Recovered/Not Resolved]
